FAERS Safety Report 25081664 (Version 2)
Quarter: 2025Q2

REPORT INFORMATION
  Report Type: Report from Study
  Country: US (occurrence: US)
  Receive Date: 20250316
  Receipt Date: 20250617
  Transmission Date: 20250717
  Serious: Yes (Hospitalization)
  Sender: ABBVIE
  Company Number: US-ABBVIE-6175444

PATIENT
  Sex: Male

DRUGS (2)
  1. IMBRUVICA [Suspect]
     Active Substance: IBRUTINIB
     Indication: Philadelphia positive chronic myeloid leukaemia
     Route: 048
     Dates: start: 20220708
  2. IMBRUVICA [Suspect]
     Active Substance: IBRUTINIB
     Indication: Philadelphia positive chronic myeloid leukaemia
     Route: 048
     Dates: start: 202210

REACTIONS (6)
  - Medical device implantation [Unknown]
  - Catheter placement [Unknown]
  - Fluid retention [Unknown]
  - Peripheral swelling [Unknown]
  - Neuropathy peripheral [Unknown]
  - Insomnia [Unknown]
